FAERS Safety Report 17681383 (Version 1)
Quarter: 2020Q2

REPORT INFORMATION
  Report Type: Report from Study
  Country: IL (occurrence: IL)
  Receive Date: 20200417
  Receipt Date: 20200417
  Transmission Date: 20200714
  Serious: Yes (Other)
  Sender: FDA-Public Use
  Company Number: IL-GLAXOSMITHKLINE-IL2018GSK168546

PATIENT

DRUGS (2)
  1. ISOTRETINOIN. [Suspect]
     Active Substance: ISOTRETINOIN
     Indication: CUTANEOUS T-CELL LYMPHOMA
     Dosage: UNK
  2. ACITRETIN. [Suspect]
     Active Substance: ACITRETIN
     Indication: CUTANEOUS T-CELL LYMPHOMA
     Dosage: UNK
     Route: 065

REACTIONS (13)
  - Dermatitis [Unknown]
  - Blood creatine phosphokinase increased [Unknown]
  - Hypertriglyceridaemia [Unknown]
  - Cheilitis [Unknown]
  - Myalgia [Unknown]
  - Sticky skin [Unknown]
  - Impaired healing [Unknown]
  - Depression [Unknown]
  - Arthralgia [Unknown]
  - Patient dissatisfaction with treatment [Unknown]
  - Xerosis [Unknown]
  - Alopecia [Unknown]
  - Headache [Unknown]
